FAERS Safety Report 6852996-6 (Version None)
Quarter: 2010Q3

REPORT INFORMATION
  Report Type: 
  Country: None (occurrence: None)
  Receive Date: 20100717
  Receipt Date: 20071128
  Transmission Date: 20110219
  Serious: No
  Sender: FDA-Public Use
  Company Number: US-PFIZER INC-2007102066

PATIENT
  Sex: Female
  Weight: 50.909 kg

DRUGS (5)
  1. CHANTIX [Suspect]
     Indication: SMOKING CESSATION THERAPY
     Dates: start: 20071105
  2. PREMPRO [Concomitant]
  3. SIMVASTATIN [Concomitant]
     Indication: BLOOD CHOLESTEROL
  4. BENICAR [Concomitant]
     Indication: BLOOD PRESSURE
  5. HYDROCHLOROTHIAZIDE [Concomitant]
     Indication: BLOOD PRESSURE

REACTIONS (2)
  - NAUSEA [None]
  - VOMITING [None]
